FAERS Safety Report 7749561-5 (Version None)
Quarter: 2011Q3

REPORT INFORMATION
  Report Type: 
  Country: None (occurrence: None)
  Receive Date: 20110914
  Receipt Date: 20110831
  Transmission Date: 20111222
  Serious: No
  Sender: FDA-Public Use
  Company Number: US-B.I. PHARMACEUTICALS,INC./RIDGEFIELD-2011-BP-21257BP

PATIENT
  Sex: Male

DRUGS (1)
  1. ZANTAC 150 [Suspect]
     Dosage: 300 MG

REACTIONS (1)
  - URINE AMPHETAMINE POSITIVE [None]
